FAERS Safety Report 7775763-8 (Version None)
Quarter: 2011Q3

REPORT INFORMATION
  Report Type: 
  Country: None (occurrence: None)
  Receive Date: 20110923
  Receipt Date: 20110913
  Transmission Date: 20111222
  Serious: Yes (Other)
  Sender: FDA-Public Use
  Company Number: BE-ELI_LILLY_AND_COMPANY-BE201109004368

PATIENT

DRUGS (5)
  1. FOLIC ACID [Concomitant]
  2. PEMETREXED [Suspect]
     Indication: NON-SMALL CELL LUNG CANCER METASTATIC
     Dosage: 500 MG/M2, EVERY 21 DAYS
  3. VITAMIN B-12 [Concomitant]
  4. EVEROLIMUS [Concomitant]
     Indication: NON-SMALL CELL LUNG CANCER METASTATIC
  5. DEXAMETHASONE [Concomitant]

REACTIONS (1)
  - MOBILITY DECREASED [None]
